FAERS Safety Report 15401492 (Version 1)
Quarter: 2018Q3

REPORT INFORMATION
  Report Type: Spontaneous
  Country: US (occurrence: US)
  Receive Date: 20180914
  Receipt Date: 20180914
  Transmission Date: 20181010
  Serious: Yes (Hospitalization)
  Sender: FDA-Public Use
  Company Number: None

PATIENT
  Sex: Male

DRUGS (12)
  1. VALPROIC ACID. [Concomitant]
     Active Substance: VALPROIC ACID
  2. FLUTICASONE. [Concomitant]
     Active Substance: FLUTICASONE
  3. LANTUS [Concomitant]
     Active Substance: INSULIN GLARGINE
  4. DEXAMETHASONE. [Concomitant]
     Active Substance: DEXAMETHASONE
  5. GLIPIZIDE. [Concomitant]
     Active Substance: GLIPIZIDE
  6. LEVETIRACETAM. [Concomitant]
     Active Substance: LEVETIRACETAM
  7. METFORMIN [Concomitant]
     Active Substance: METFORMIN HYDROCHLORIDE
  8. DIVALPROEX [Concomitant]
     Active Substance: DIVALPROEX SODIUM
  9. KEPPRA [Concomitant]
     Active Substance: LEVETIRACETAM
  10. TEMOZOLOMIDE. [Suspect]
     Active Substance: TEMOZOLOMIDE
     Indication: BRAIN NEOPLASM MALIGNANT
     Route: 048
  11. VIMPAT [Concomitant]
     Active Substance: LACOSAMIDE
  12. PRAVASTATIN. [Concomitant]
     Active Substance: PRAVASTATIN

REACTIONS (1)
  - Hospitalisation [None]
